FAERS Safety Report 17187896 (Version 7)
Quarter: 2020Q1

REPORT INFORMATION
  Report Type: Spontaneous
  Country: US (occurrence: US)
  Receive Date: 20191221
  Receipt Date: 20200226
  Transmission Date: 20200409
  Serious: No
  Sender: FDA-Public Use
  Company Number: US-UNITED THERAPEUTICS-UNT-2019-020935

PATIENT
  Age: 47 Year
  Sex: Female
  Weight: 38.95 kg

DRUGS (2)
  1. REMODULIN [Suspect]
     Active Substance: TREPROSTINIL
     Dosage: 0.020 ?G/KG, CONTINUING
     Route: 058
     Dates: start: 201912
  2. REMODULIN [Suspect]
     Active Substance: TREPROSTINIL
     Indication: PULMONARY ARTERIAL HYPERTENSION
     Dosage: 0.01375 ?G/KG, CONTINUING
     Route: 058
     Dates: start: 20191211

REACTIONS (13)
  - Oedema [Recovering/Resolving]
  - Infusion site discharge [Unknown]
  - Fluid retention [Unknown]
  - Pain [Unknown]
  - Ascites [Unknown]
  - Diarrhoea [Unknown]
  - Infusion site pruritus [Unknown]
  - Infusion site discolouration [Unknown]
  - Infusion site erythema [Unknown]
  - Purulent discharge [Unknown]
  - Infusion site pain [Recovering/Resolving]
  - Infusion site swelling [Unknown]
  - Headache [Unknown]

NARRATIVE: CASE EVENT DATE: 201912
